FAERS Safety Report 4629305-6 (Version None)
Quarter: 2005Q2

REPORT INFORMATION
  Report Type: 
  Country: None (occurrence: None)
  Receive Date: 20050405
  Receipt Date: 20050405
  Transmission Date: 20051028
  Serious: Yes (Disabling)
  Sender: FDA-Public Use
  Company Number: None

PATIENT

DRUGS (2)
  1. CITANEST FORTE [Suspect]
     Indication: LOCAL ANAESTHESIA
     Dosage: 1 CARTRIDGE 1.8 40MG/ML
  2. CITANEST PLAIN [Suspect]

REACTIONS (3)
  - ANAESTHETIC COMPLICATION [None]
  - PARAESTHESIA [None]
  - TRIGEMINAL NERVE DISORDER [None]
